FAERS Safety Report 7902270 (Version 4)
Quarter: 2014Q4

REPORT INFORMATION
  Report Type: Spontaneous
  Country: US (occurrence: US)
  Receive Date: 20110418
  Receipt Date: 20141226
  Transmission Date: 20150529
  Serious: Yes (Other)
  Sender: FDA-Public Use
  Company Number: US-SANOFI-AVENTIS-2011SA021863

PATIENT
  Age: 80 Year
  Sex: Female

DRUGS (7)
  1. CORTISONE [Suspect]
     Active Substance: CORTISONE\HYDROCORTISONE
     Indication: PRODUCT USED FOR UNKNOWN INDICATION
     Route: 065
  2. MULTAQ [Suspect]
     Active Substance: DRONEDARONE
     Indication: ATRIAL FIBRILLATION
     Route: 048
     Dates: start: 20101221
  3. ZETIA [Concomitant]
     Active Substance: EZETIMIBE
     Indication: BLOOD CHOLESTEROL
  4. ALL OTHER THERAPEUTIC PRODUCTS [Concomitant]
     Active Substance: UNSPECIFIED INGREDIENT
     Indication: BLOOD CHOLESTEROL
  5. MULTAQ [Interacting]
     Active Substance: DRONEDARONE
     Indication: ATRIAL FIBRILLATION
     Route: 048
     Dates: start: 2011
  6. SIMVASTATIN. [Interacting]
     Active Substance: SIMVASTATIN
     Indication: BLOOD CHOLESTEROL
     Route: 065
  7. WELCHOL [Concomitant]
     Active Substance: COLESEVELAM HYDROCHLORIDE
     Indication: BLOOD CHOLESTEROL

REACTIONS (16)
  - Asthenia [Unknown]
  - Fatigue [Unknown]
  - Vomiting [Unknown]
  - Incorrect dose administered [Unknown]
  - Chills [Recovered/Resolved]
  - Drug interaction [Unknown]
  - Feeling abnormal [Unknown]
  - Atrial fibrillation [Recovered/Resolved]
  - Low density lipoprotein increased [Unknown]
  - High density lipoprotein decreased [Unknown]
  - Myalgia [Recovered/Resolved]
  - Alopecia [Unknown]
  - Muscle spasms [Recovering/Resolving]
  - Supraventricular tachycardia [Unknown]
  - Wisdom teeth removal [Unknown]
  - Nausea [Unknown]

NARRATIVE: CASE EVENT DATE: 201102
